FAERS Safety Report 4724297-3 (Version None)
Quarter: 2005Q3

REPORT INFORMATION
  Report Type: 
  Country: None (occurrence: None)
  Receive Date: 20050726
  Receipt Date: 20050721
  Transmission Date: 20060218
  Serious: Yes (Death, Hospitalization)
  Sender: FDA-Public Use
  Company Number: US-ABBOTT-05P-163-0306321-00

PATIENT
  Sex: Female

DRUGS (8)
  1. HUMIRA [Suspect]
     Indication: RHEUMATOID ARTHRITIS
     Route: 058
     Dates: start: 20031001
  2. EPOGEN [Concomitant]
     Indication: RED BLOOD CELL COUNT DECREASED
     Route: 048
  3. CALCIUM GLUCONATE [Concomitant]
     Indication: MINERAL SUPPLEMENTATION
     Route: 048
  4. PREDNISONE [Concomitant]
     Indication: RHEUMATOID ARTHRITIS
     Route: 048
  5. WATER PILL [Concomitant]
     Indication: DRUG USE FOR UNKNOWN INDICATION
     Route: 048
  6. SLEEPING PILL [Concomitant]
     Indication: INSOMNIA
     Route: 048
  7. STOOL SOFTENER [Concomitant]
     Indication: CONSTIPATION
     Route: 048
  8. LACTULOSE [Concomitant]
     Indication: CONSTIPATION
     Route: 048

REACTIONS (3)
  - FAILURE TO THRIVE [None]
  - OSTEOARTHRITIS [None]
  - PATHOLOGICAL FRACTURE [None]
